FAERS Safety Report 7524877-6 (Version None)
Quarter: 2011Q2

REPORT INFORMATION
  Report Type: 
  Country: None (occurrence: None)
  Receive Date: 20110606
  Receipt Date: 20110523
  Transmission Date: 20111010
  Serious: Yes (Other)
  Sender: FDA-Public Use
  Company Number: US-ELI_LILLY_AND_COMPANY-US201103004505

PATIENT
  Sex: Male
  Weight: 69.841 kg

DRUGS (6)
  1. FORTEO [Suspect]
     Dosage: 20 UG, QD
     Route: 030
  2. FORTEO [Suspect]
     Indication: OSTEOPOROSIS
     Dosage: 20 UG, DAILY (1/D)
     Route: 030
     Dates: start: 20100820
  3. FORTEO [Suspect]
     Dosage: 20 UG, QD
     Route: 030
     Dates: end: 20110316
  4. PLAVIX [Concomitant]
  5. FISH OIL [Concomitant]
  6. LEVOTHYROXINE SODIUM [Concomitant]
     Indication: THYROID DISORDER

REACTIONS (10)
  - FEELING ABNORMAL [None]
  - TRANSIENT ISCHAEMIC ATTACK [None]
  - PAIN [None]
  - PAIN OF SKIN [None]
  - PARAESTHESIA [None]
  - BEHAVIOURAL AND PSYCHIATRIC SYMPTOMS OF DEMENTIA [None]
  - NODULE [None]
  - FATIGUE [None]
  - BURNING SENSATION [None]
  - SKIN DISORDER [None]
